FAERS Safety Report 8347492-3 (Version None)
Quarter: 2012Q2

REPORT INFORMATION
  Report Type: 
  Country: None (occurrence: None)
  Receive Date: 20120509
  Receipt Date: 20120425
  Transmission Date: 20120825
  Serious: Yes (Other)
  Sender: FDA-Public Use
  Company Number: US-JNJFOC-20120405354

PATIENT
  Sex: Male
  Weight: 90.72 kg

DRUGS (4)
  1. STEROIDS NOS [Suspect]
     Indication: PAIN
     Route: 050
     Dates: start: 20120301
  2. GABAPENTIN [Suspect]
     Indication: NEURALGIA
     Route: 048
     Dates: start: 20120301, end: 20120101
  3. NUCYNTA [Suspect]
     Dosage: THREE TIMES A DAY
     Route: 065
     Dates: start: 20111101, end: 20111101
  4. NUCYNTA [Suspect]
     Indication: PAIN
     Dosage: THREE TIMES A DAY
     Route: 065
     Dates: start: 20111101

REACTIONS (8)
  - HALLUCINATION [None]
  - ADVERSE DRUG REACTION [None]
  - NONSPECIFIC REACTION [None]
  - HEADACHE [None]
  - NEURALGIA [None]
  - INADEQUATE ANALGESIA [None]
  - STRESS [None]
  - PANIC ATTACK [None]
